FAERS Safety Report 10229227 (Version 1)
Quarter: 2014Q2

REPORT INFORMATION
  Report Type: Spontaneous
  Country: US (occurrence: US)
  Receive Date: 20140611
  Receipt Date: 20140611
  Transmission Date: 20141212
  Serious: Yes (Other)
  Sender: FDA-Public Use
  Company Number: US-BEH-2014043016

PATIENT
  Age: 62 Year
  Sex: Female

DRUGS (1)
  1. BERINERT [Suspect]
     Indication: LIPIDOSIS
     Dates: start: 20140224

REACTIONS (2)
  - Hereditary angioedema [Unknown]
  - Lip swelling [Unknown]
